FAERS Safety Report 6903283-9 (Version None)
Quarter: 2010Q3

REPORT INFORMATION
  Report Type: 
  Country: None (occurrence: None)
  Receive Date: 20100803
  Receipt Date: 20080808
  Transmission Date: 20110219
  Serious: No
  Sender: FDA-Public Use
  Company Number: US-PFIZER INC-2008067305

PATIENT
  Age: 63 Year
  Sex: Female
  Weight: 58.2 kg

DRUGS (9)
  1. LYRICA [Suspect]
     Indication: BACK PAIN
     Dates: start: 20080807
  2. LYRICA [Suspect]
     Indication: HYPOAESTHESIA
  3. MELOXICAM [Suspect]
     Indication: BACK PAIN
     Dates: start: 20080807
  4. MELOXICAM [Suspect]
     Indication: HYPOAESTHESIA
  5. ESTRACE [Concomitant]
  6. AMBIEN [Concomitant]
  7. VITAMIN TAB [Concomitant]
  8. FISH OIL [Concomitant]
  9. CYCLOBENZAPRINE [Concomitant]
     Dates: start: 20080807

REACTIONS (3)
  - DIZZINESS [None]
  - FATIGUE [None]
  - FEELING ABNORMAL [None]
